FAERS Safety Report 8074417-0 (Version None)
Quarter: 2012Q1

REPORT INFORMATION
  Report Type: 
  Country: None (occurrence: None)
  Receive Date: 20120126
  Receipt Date: 20120123
  Transmission Date: 20120608
  Serious: Yes (Hospitalization)
  Sender: FDA-Public Use
  Company Number: FR-GLAXOSMITHKLINE-B0772735A

PATIENT
  Sex: Male

DRUGS (7)
  1. NEURONTIN [Suspect]
     Indication: PRODUCT USED FOR UNKNOWN INDICATION
     Dosage: 100MG THREE TIMES PER DAY
     Route: 048
     Dates: start: 20110930, end: 20111113
  2. CLONAZEPAM [Concomitant]
     Indication: ANXIETY
     Dosage: 10DROP PER DAY
     Route: 048
     Dates: start: 20110930, end: 20111113
  3. INVANZ [Suspect]
     Indication: BACTERIAL INFECTION
     Dosage: 1G PER DAY
     Route: 042
     Dates: start: 20111104, end: 20111115
  4. SIMVASTATIN [Concomitant]
     Indication: HYPERCHOLESTEROLAEMIA
     Dosage: 20MG PER DAY
  5. AVODART [Suspect]
     Indication: BENIGN PROSTATIC HYPERPLASIA
     Dosage: .5MG PER DAY
     Route: 048
     Dates: start: 20111003
  6. RISPERDAL [Suspect]
     Indication: ABNORMAL BEHAVIOUR
     Dosage: .5MG TWICE PER DAY
     Route: 048
     Dates: start: 20111016
  7. ZOLOFT [Concomitant]
     Indication: DEPRESSION
     Dosage: 50MG PER DAY
     Route: 048

REACTIONS (1)
  - NEUTROPENIA [None]
